FAERS Safety Report 8415226-X (Version None)
Quarter: 2012Q2

REPORT INFORMATION
  Report Type: 
  Country: None (occurrence: None)
  Receive Date: 20120323
  Receipt Date: 20111208
  Transmission Date: 20120825
  Serious: Yes (Other)
  Sender: FDA-Public Use
  Company Number: 163-21880-11121134

PATIENT
  Age: 56 Year
  Sex: Female

DRUGS (4)
  1. REVLIMID [Suspect]
     Indication: MULTIPLE MYELOMA
     Dosage: 25 MG, 1 IN 1 D, PO 25 MG, 1 IN 1 D, PO 25 MG, 1 IN 1 D, PO 15 MG, DAYS 1-25, EVERY 28 DAYS, PO
     Route: 048
     Dates: start: 20100101
  2. REVLIMID [Suspect]
     Indication: MULTIPLE MYELOMA
     Dosage: 25 MG, 1 IN 1 D, PO 25 MG, 1 IN 1 D, PO 25 MG, 1 IN 1 D, PO 15 MG, DAYS 1-25, EVERY 28 DAYS, PO
     Route: 048
     Dates: start: 20081201
  3. REVLIMID [Suspect]
     Indication: MULTIPLE MYELOMA
     Dosage: 25 MG, 1 IN 1 D, PO 25 MG, 1 IN 1 D, PO 25 MG, 1 IN 1 D, PO 15 MG, DAYS 1-25, EVERY 28 DAYS, PO
     Route: 048
     Dates: start: 20110601
  4. REVLIMID [Suspect]
     Indication: MULTIPLE MYELOMA
     Dosage: 25 MG, 1 IN 1 D, PO 25 MG, 1 IN 1 D, PO 25 MG, 1 IN 1 D, PO 15 MG, DAYS 1-25, EVERY 28 DAYS, PO
     Route: 048
     Dates: start: 20110101

REACTIONS (1)
  - WEIGHT DECREASED [None]
